FAERS Safety Report 10369825 (Version 2)
Quarter: 2014Q3

REPORT INFORMATION
  Report Type: Spontaneous
  Country: FR (occurrence: FR)
  Receive Date: 20140808
  Receipt Date: 20140808
  Transmission Date: 20150326
  Serious: Yes (Death, Other)
  Sender: FDA-Public Use
  Company Number: FR-AMGEN-FRASP2014016301

PATIENT
  Sex: Female

DRUGS (4)
  1. TRAMADOL [Concomitant]
     Active Substance: TRAMADOL
     Indication: PSORIATIC ARTHROPATHY
     Dosage: 100 MG IN 2 INTAKES DAILY
     Route: 050
     Dates: start: 201005
  2. CELEBREX [Concomitant]
     Active Substance: CELECOXIB
     Indication: PSORIATIC ARTHROPATHY
     Dosage: 200 MG, ONCE DAILY
     Route: 050
     Dates: start: 201005
  3. ENBREL [Suspect]
     Active Substance: ETANERCEPT
     Indication: EXPOSURE DURING PREGNANCY
     Dosage: UNK
     Dates: start: 20130906
  4. ARAVA [Concomitant]
     Active Substance: LEFLUNOMIDE
     Indication: PSORIATIC ARTHROPATHY
     Dosage: 20 MG, ONCE DAILY
     Route: 050
     Dates: start: 201005

REACTIONS (2)
  - Foetal death [Fatal]
  - Exposure via partner [Unknown]

NARRATIVE: CASE EVENT DATE: 20140606
